FAERS Safety Report 14133030 (Version 1)
Quarter: 2017Q4

REPORT INFORMATION
  Report Type: Spontaneous
  Country: US (occurrence: US)
  Receive Date: 20171026
  Receipt Date: 20171026
  Transmission Date: 20180321
  Serious: No
  Sender: FDA-Public Use
  Company Number: None

PATIENT
  Age: 27 Year
  Sex: Female
  Weight: 72 kg

DRUGS (2)
  1. TARTE FOUNDATION (WITH SUNSCREEN SPF) [Suspect]
     Active Substance: AVOBENZONE\OCTINOXATE\OCTISALATE\OXYBENZONE OR TITANIUM DIOXIDE\ZINC OXIDE
     Route: 061
     Dates: end: 20170404
  2. TARTE FOUNDATION (COSMETICS) [Suspect]
     Active Substance: COSMETICS

REACTIONS (2)
  - Irritability [None]
  - Anxiety [None]

NARRATIVE: CASE EVENT DATE: 20171026
